FAERS Safety Report 11510773 (Version 2)
Quarter: 2015Q4

REPORT INFORMATION
  Report Type: Report from Study
  Country: ZA (occurrence: ZA)
  Receive Date: 20150915
  Receipt Date: 20151006
  Transmission Date: 20160304
  Serious: Yes (Death, Hospitalization, Other)
  Sender: FDA-Public Use
  Company Number: ZA-ASTELLAS-2015US032326

PATIENT
  Age: 79 Year
  Sex: Male

DRUGS (2)
  1. ENZALUTAMIDE [Suspect]
     Active Substance: ENZALUTAMIDE
     Indication: HORMONE-REFRACTORY PROSTATE CANCER
     Dosage: 3 DF, ONCE DAILY (40 MG)
     Route: 048
     Dates: start: 20150721, end: 20150803
  2. ENZALUTAMIDE [Suspect]
     Active Substance: ENZALUTAMIDE
     Route: 048
     Dates: start: 20150808, end: 201508

REACTIONS (8)
  - Dizziness [Unknown]
  - Rectal haemorrhage [Not Recovered/Not Resolved]
  - Malignant neoplasm progression [Fatal]
  - Respiratory failure [Fatal]
  - Chronic obstructive pulmonary disease [Fatal]
  - Nausea [Unknown]
  - Colon cancer [Unknown]
  - Underdose [Unknown]

NARRATIVE: CASE EVENT DATE: 2015
